FAERS Safety Report 21416668 (Version 1)
Quarter: 2022Q4

REPORT INFORMATION
  Report Type: Spontaneous
  Country: DE (occurrence: DE)
  Receive Date: 20221006
  Receipt Date: 20221006
  Transmission Date: 20230113
  Serious: Yes (Hospitalization)
  Sender: FDA-Public Use
  Company Number: None

PATIENT
  Age: 62 Year
  Sex: Female
  Weight: 85 kg

DRUGS (7)
  1. GALANTAMINE [Suspect]
     Active Substance: GALANTAMINE
     Indication: Product used for unknown indication
     Dosage: 16 MG, 1-0-0-0,
     Route: 048
  2. RISPERIDONE [Suspect]
     Active Substance: RISPERIDONE
     Indication: Product used for unknown indication
     Dosage: 0.25 MG, 0-0-1-1,
     Route: 048
  3. ASPIRIN [Concomitant]
     Active Substance: ASPIRIN
     Indication: Product used for unknown indication
     Dosage: 100 MG, 0-1-0-0,
     Route: 048
  4. calcium carbonate/sodium alginate/sodium carbonate [Concomitant]
     Indication: Product used for unknown indication
     Dosage: 325|500|213 MG, 0-0-1-0, SUSPENSION
     Route: 048
  5. Levothyroxin-SODIUM [Concomitant]
     Indication: Product used for unknown indication
     Dosage: 75 G, 1-0-0-0,
     Route: 048
  6. PANTOPRAZOLE [Concomitant]
     Active Substance: PANTOPRAZOLE
     Indication: Product used for unknown indication
     Dosage: 40 MG, 1-0-1-0,
     Route: 048
  7. VALPROIC ACID [Concomitant]
     Active Substance: VALPROIC ACID
     Indication: Product used for unknown indication
     Dosage: 300 MG, 1-0-1-0,
     Route: 048

REACTIONS (2)
  - Abdominal pain lower [Unknown]
  - Decreased appetite [Unknown]
